FAERS Safety Report 5010187-8 (Version None)
Quarter: 2006Q2

REPORT INFORMATION
  Report Type: 
  Country: None (occurrence: None)
  Receive Date: 20060404
  Receipt Date: 20051116
  Transmission Date: 20061013
  Serious: Yes (Hospitalization)
  Sender: FDA-Public Use
  Company Number: US200511002252

PATIENT
  Sex: Female

DRUGS (9)
  1. CYMBALTA [Suspect]
     Dosage: SEE IMAGE
     Dates: start: 20050101
  2. CYMBALTA [Suspect]
     Dosage: SEE IMAGE
     Dates: start: 20050201
  3. CYMBALTA [Suspect]
     Dosage: SEE IMAGE
     Dates: start: 20050204
  4. CYMBALTA [Suspect]
     Dosage: SEE IMAGE
     Dates: start: 20050218
  5. VICODIN [Concomitant]
  6. INSULIN [Concomitant]
  7. DITROPAN /USA/(OXYBUTYNIN) [Concomitant]
  8. PRINIVIL [Concomitant]
  9. ZOCOR [Concomitant]

REACTIONS (3)
  - DEPRESSION [None]
  - URINARY HESITATION [None]
  - URINARY RETENTION [None]
